FAERS Safety Report 10356995 (Version 1)
Quarter: 2014Q3

REPORT INFORMATION
  Report Type: Report from Study
  Country: VE (occurrence: VE)
  Receive Date: 20140801
  Receipt Date: 20140801
  Transmission Date: 20150326
  Serious: Yes (Hospitalization)
  Sender: FDA-Public Use
  Company Number: VE-SHIRE-VE201404422

PATIENT
  Age: 17 Year
  Sex: Male

DRUGS (1)
  1. IDURSULFASE [Suspect]
     Active Substance: IDURSULFASE
     Indication: MUCOPOLYSACCHARIDOSIS II
     Dosage: 0.56 MG/KG, 1X/WEEK (EVERY WEEK)
     Route: 041
     Dates: start: 20080702

REACTIONS (1)
  - Pneumonia [Unknown]
